FAERS Safety Report 20853351 (Version 3)
Quarter: 2024Q4

REPORT INFORMATION
  Report Type: Spontaneous
  Country: JP (occurrence: JP)
  Receive Date: 20220520
  Receipt Date: 20241028
  Transmission Date: 20250115
  Serious: Yes (Hospitalization, Other)
  Sender: MERCK
  Company Number: JP-MSD-M2022-18584

PATIENT
  Age: 80 Year
  Sex: Male

DRUGS (6)
  1. KEYTRUDA [Suspect]
     Active Substance: PEMBROLIZUMAB
     Indication: Lung squamous cell carcinoma stage IV
     Dosage: 200 MILLIGRAM, Q3W
     Route: 041
     Dates: start: 2022, end: 2022
  2. KEYTRUDA [Suspect]
     Active Substance: PEMBROLIZUMAB
     Indication: PD-L1 positive cancer
  3. CARBOPLATIN [Concomitant]
     Active Substance: CARBOPLATIN
     Indication: Lung squamous cell carcinoma stage IV
     Dosage: AUC6, Q3W
     Route: 041
  4. CARBOPLATIN [Concomitant]
     Active Substance: CARBOPLATIN
     Indication: PD-L1 positive cancer
  5. PACLITAXEL [Concomitant]
     Active Substance: PACLITAXEL
     Indication: Lung squamous cell carcinoma stage IV
     Dosage: 200 MILLIGRAM/SQ. METER, Q3W
     Route: 041
  6. PACLITAXEL [Concomitant]
     Active Substance: PACLITAXEL
     Indication: PD-L1 positive cancer

REACTIONS (1)
  - Agranulocytosis [Recovered/Resolved]

NARRATIVE: CASE EVENT DATE: 20220506
